FAERS Safety Report 14318333 (Version 1)
Quarter: 2017Q4

REPORT INFORMATION
  Report Type: Spontaneous
  Country: US (occurrence: US)
  Receive Date: 20171222
  Receipt Date: 20171222
  Transmission Date: 20180321
  Serious: Yes (Other)
  Sender: FDA-Public Use
  Company Number: US-ASTELLAS-2017US054769

PATIENT
  Sex: Female

DRUGS (1)
  1. MYRBETRIQ [Suspect]
     Active Substance: MIRABEGRON
     Indication: PRODUCT USED FOR UNKNOWN INDICATION
     Route: 065
     Dates: start: 20171209

REACTIONS (4)
  - Gait disturbance [Unknown]
  - Intentional product misuse [Unknown]
  - Peripheral swelling [Unknown]
  - Rash [Unknown]
